FAERS Safety Report 6015906-X (Version None)
Quarter: 2008Q4

REPORT INFORMATION
  Report Type: 
  Country: None (occurrence: None)
  Receive Date: 20081222
  Receipt Date: 20081218
  Transmission Date: 20090506
  Serious: Yes (Hospitalization)
  Sender: FDA-Public Use
  Company Number: B0551184A

PATIENT
  Age: 68 Year
  Sex: Female
  Weight: 49 kg

DRUGS (5)
  1. TOPOTECAN [Suspect]
     Indication: NEOPLASM MALIGNANT
     Dosage: .75U UNKNOWN
     Route: 042
     Dates: start: 20081119
  2. CARBOPLATIN [Suspect]
     Indication: NEOPLASM MALIGNANT
     Route: 042
     Dates: start: 20081121
  3. CIPROFLOXACIN HCL [Concomitant]
     Indication: URINARY TRACT INFECTION
     Dosage: 250MG UNKNOWN
     Route: 048
     Dates: start: 20081204, end: 20081207
  4. METOPROLOL SUCCINATE [Concomitant]
     Indication: HYPERTONIA
     Route: 048
  5. AUGMENTIN '125' [Concomitant]
     Indication: URINARY TRACT INFECTION
     Dosage: 125MG UNKNOWN
     Route: 048
     Dates: start: 20081213

REACTIONS (2)
  - BLOOD CREATININE INCREASED [None]
  - DEHYDRATION [None]
